FAERS Safety Report 7325709-1 (Version None)
Quarter: 2011Q1

REPORT INFORMATION
  Report Type: 
  Country: None (occurrence: None)
  Receive Date: 20110302
  Receipt Date: 20101129
  Transmission Date: 20110831
  Serious: Yes (Hospitalization)
  Sender: FDA-Public Use
  Company Number: JP-BAYER-201015580BYL

PATIENT
  Age: 75 Year
  Sex: Female
  Weight: 70 kg

DRUGS (10)
  1. SUMIFERON [Concomitant]
     Indication: RENAL CELL CARCINOMA
     Dosage: 3 MIU
     Route: 042
     Dates: start: 20090828, end: 20100318
  2. ATELEC [Concomitant]
     Indication: HYPERTENSION
     Dosage: 10 MG
     Route: 048
  3. ACTOS [Concomitant]
     Indication: DIABETES MELLITUS
     Dosage: 15 MG
     Route: 048
  4. CARDENALIN [Concomitant]
     Indication: HYPERTENSION
     Dosage: 2 MG
     Route: 048
  5. NEXAVAR [Suspect]
     Indication: RENAL CELL CARCINOMA
     Dosage: DAILY DOSE 400 MG
     Route: 048
     Dates: start: 20100610, end: 20100907
  6. NEXAVAR [Suspect]
     Dosage: 400 MG
     Route: 048
     Dates: start: 20100630, end: 20101007
  7. LOXOPROFEN [Concomitant]
     Indication: COMPRESSION FRACTURE
     Dosage: DAILY DOSE 120 MG
     Route: 048
     Dates: start: 20100926
  8. SUMIFERON [Concomitant]
     Dosage: 6 MIU
     Route: 042
     Dates: start: 20100323, end: 20100525
  9. LASIX [Concomitant]
  10. MUCOSTA [Concomitant]
     Indication: COMPRESSION FRACTURE
     Dosage: DAILY DOSE 200 MG
     Route: 048
     Dates: start: 20100926

REACTIONS (1)
  - PLEURAL EFFUSION [None]
